FAERS Safety Report 22621678 (Version 1)
Quarter: 2023Q2

REPORT INFORMATION
  Report Type: Spontaneous
  Country: US (occurrence: None)
  Receive Date: 20230619
  Receipt Date: 20230619
  Transmission Date: 20230722
  Serious: Yes (Disabling)
  Sender: FDA-Public Use
  Company Number: None

PATIENT
  Age: 38 Year
  Sex: Female
  Weight: 59.4 kg

DRUGS (1)
  1. BOTOX [Suspect]
     Active Substance: ONABOTULINUMTOXINA

REACTIONS (21)
  - Neuromuscular toxicity [None]
  - Dizziness [None]
  - Dehydration [None]
  - Burning sensation [None]
  - Dyspnoea [None]
  - Lymphadenopathy [None]
  - Dysphagia [None]
  - Swelling face [None]
  - Head discomfort [None]
  - Palpitations [None]
  - Chest pain [None]
  - Chest discomfort [None]
  - Tongue discomfort [None]
  - Food allergy [None]
  - Vertigo [None]
  - Drug hypersensitivity [None]
  - Nutritional supplement allergy [None]
  - Pain in extremity [None]
  - Oral discomfort [None]
  - Chest pain [None]
  - Pain in extremity [None]

NARRATIVE: CASE EVENT DATE: 20220415
